FAERS Safety Report 15833675 (Version 2)
Quarter: 2019Q1

REPORT INFORMATION
  Report Type: Spontaneous
  Country: US (occurrence: US)
  Receive Date: 20190116
  Receipt Date: 20190211
  Transmission Date: 20190417
  Serious: No
  Sender: FDA-Public Use
  Company Number: US-CELGENEUS-USA-20190100918

PATIENT
  Age: 47 Year
  Sex: Female
  Weight: 118.95 kg

DRUGS (6)
  1. OTEZLA [Suspect]
     Active Substance: APREMILAST
     Indication: PSORIATIC ARTHROPATHY
     Dosage: 60 MILLIGRAM
     Route: 048
     Dates: start: 20180312
  2. OTEZLA [Suspect]
     Active Substance: APREMILAST
     Dosage: 45 MILLIGRAM (1 AND HALF TABLET)
     Route: 048
     Dates: start: 20180615
  3. VITAMIN C [Concomitant]
     Active Substance: ASCORBIC ACID
     Indication: IRON DEFICIENCY ANAEMIA
     Dosage: 500 MILLIGRAM
     Route: 048
  4. FERROUS GLUCONATE [Concomitant]
     Active Substance: FERROUS GLUCONATE
     Indication: IRON DEFICIENCY ANAEMIA
     Route: 048
  5. DICLOFENAC SODIUM. [Concomitant]
     Active Substance: DICLOFENAC SODIUM
     Indication: PRODUCT USED FOR UNKNOWN INDICATION
     Dosage: 150 MILLIGRAM.
     Route: 048
  6. IRON [Concomitant]
     Active Substance: IRON
     Indication: PRODUCT USED FOR UNKNOWN INDICATION
     Route: 065

REACTIONS (2)
  - Wrong technique in product usage process [Unknown]
  - Migraine without aura [Not Recovered/Not Resolved]

NARRATIVE: CASE EVENT DATE: 201806
